FAERS Safety Report 23550008 (Version 1)
Quarter: 2024Q1

REPORT INFORMATION
  Report Type: Spontaneous
  Country: LU (occurrence: LU)
  Receive Date: 20240221
  Receipt Date: 20240221
  Transmission Date: 20240410
  Serious: Yes (Hospitalization)
  Sender: FDA-Public Use
  Company Number: None

PATIENT
  Age: 80 Year
  Sex: Male
  Weight: 65 kg

DRUGS (6)
  1. FLUOROURACIL [Suspect]
     Active Substance: FLUOROURACIL
     Indication: Rectal cancer
     Dosage: TIME INTERVAL: 1 CYCLICAL
     Route: 042
     Dates: start: 20231205, end: 20231207
  2. DEXAMETHASONE [Concomitant]
     Active Substance: DEXAMETHASONE
     Indication: Chemotherapy side effect prophylaxis
     Dosage: TIME INTERVAL: 1 TOTAL
     Dates: start: 20231205, end: 20231205
  3. BEVACIZUMAB [Concomitant]
     Active Substance: BEVACIZUMAB
     Indication: Rectal cancer
     Dosage: TIME INTERVAL: CYCLICAL
     Route: 042
     Dates: start: 20231205, end: 20231205
  4. OXALIPLATIN [Concomitant]
     Active Substance: OXALIPLATIN
     Indication: Rectal cancer
     Dosage: TIME INTERVAL: 1 CYCLICAL
     Route: 042
     Dates: start: 20231205, end: 20231205
  5. LEUCOVORIN [Concomitant]
     Active Substance: LEUCOVORIN\LEUCOVORIN CALCIUM
     Indication: Chemotherapy side effect prophylaxis
     Dosage: TIME INTERVAL: TOTAL: ACIDE FOLINIQUE
     Route: 042
     Dates: start: 20231205, end: 20231205
  6. ONDANSETRON [Concomitant]
     Active Substance: ONDANSETRON
     Indication: Chemotherapy side effect prophylaxis
     Dosage: TIME INTERVAL: 1 TOTAL
     Dates: start: 20231205, end: 20231205

REACTIONS (1)
  - Pyrexia [Recovered/Resolved]

NARRATIVE: CASE EVENT DATE: 20231206
